FAERS Safety Report 18014112 (Version 1)
Quarter: 2020Q3

REPORT INFORMATION
  Report Type: Spontaneous
  Country: US (occurrence: US)
  Receive Date: 20200713
  Receipt Date: 20200713
  Transmission Date: 20201103
  Serious: No
  Sender: FDA-Public Use
  Company Number: NVSC2020US195986

PATIENT

DRUGS (2)
  1. PIQRAY [Suspect]
     Active Substance: ALPELISIB
     Indication: PRODUCT USED FOR UNKNOWN INDICATION
     Route: 065
  2. PIQRAY [Suspect]
     Active Substance: ALPELISIB
     Dosage: 150 MG
     Route: 065

REACTIONS (1)
  - Hyperglycaemia [Unknown]
